FAERS Safety Report 7949332-0 (Version None)
Quarter: 2011Q4

REPORT INFORMATION
  Report Type: 
  Country: None (occurrence: None)
  Receive Date: 20111125
  Receipt Date: 20111122
  Transmission Date: 20120403
  Serious: Yes (Death)
  Sender: FDA-Public Use
  Company Number: 2011SP003962

PATIENT
  Age: 44 Year
  Sex: Male

DRUGS (3)
  1. PALIPERIDONE [Concomitant]
  2. LATUDA [Suspect]
     Indication: SCHIZOPHRENIA
     Dosage: ;ORAL
     Route: 048
     Dates: start: 20110101, end: 20110101
  3. ZYPREXA [Concomitant]

REACTIONS (6)
  - SUICIDE ATTEMPT [None]
  - PHYSICAL ASSAULT [None]
  - PSYCHIATRIC DECOMPENSATION [None]
  - GUN SHOT WOUND [None]
  - INTENTIONAL SELF-INJURY [None]
  - INSOMNIA [None]
